FAERS Safety Report 5003193-0 (Version None)
Quarter: 2006Q2

REPORT INFORMATION
  Report Type: 
  Country: None (occurrence: None)
  Receive Date: 20060510
  Receipt Date: 20060428
  Transmission Date: 20061013
  Serious: Yes (Disabling)
  Sender: FDA-Public Use
  Company Number: 200611890BWH

PATIENT
  Age: 64 Year
  Sex: Male
  Weight: 99.7913 kg

DRUGS (2)
  1. NEXAVAR [Suspect]
     Indication: METASTATIC RENAL CELL CARCINOMA
     Dosage: 400 MG, BID, ORAL; SEE IMAGE
     Route: 048
     Dates: start: 20060101
  2. NEXAVAR [Suspect]
     Indication: METASTATIC RENAL CELL CARCINOMA
     Dosage: 400 MG, BID, ORAL; SEE IMAGE
     Route: 048
     Dates: start: 20060201

REACTIONS (8)
  - AMNESIA [None]
  - BLOOD PRESSURE INCREASED [None]
  - COUGH [None]
  - DIARRHOEA [None]
  - DRY SKIN [None]
  - DYSPHONIA [None]
  - MOBILITY DECREASED [None]
  - WEIGHT DECREASED [None]
